FAERS Safety Report 5346566-9 (Version None)
Quarter: 2007Q2

REPORT INFORMATION
  Report Type: 
  Country: None (occurrence: None)
  Receive Date: 20070605
  Receipt Date: 20070531
  Transmission Date: 20071010
  Serious: Yes (Death)
  Sender: FDA-Public Use
  Company Number: IT-MERCK-0706ITA00004

PATIENT

DRUGS (1)
  1. HYZAAR [Suspect]
     Route: 048

REACTIONS (2)
  - BLOOD POTASSIUM INCREASED [None]
  - DEATH [None]
